FAERS Safety Report 11116388 (Version 1)
Quarter: 2015Q2

REPORT INFORMATION
  Report Type: Spontaneous
  Country: AU (occurrence: AU)
  Receive Date: 20150515
  Receipt Date: 20150515
  Transmission Date: 20150821
  Serious: Yes (Other)
  Sender: FDA-Public Use
  Company Number: AU-BAUSCH-BL-2015-012570

PATIENT
  Sex: Male

DRUGS (5)
  1. CEFTRIAXONE. [Suspect]
     Active Substance: CEFTRIAXONE
     Indication: PRODUCT USED FOR UNKNOWN INDICATION
     Route: 065
  2. PREDNISOLONE. [Suspect]
     Active Substance: PREDNISOLONE
     Indication: PRODUCT USED FOR UNKNOWN INDICATION
     Route: 065
  3. MYCOPHENOLATE MOFETIL. [Suspect]
     Active Substance: MYCOPHENOLATE MOFETIL
     Indication: PRODUCT USED FOR UNKNOWN INDICATION
     Route: 065
  4. BASILIXIMAB [Suspect]
     Active Substance: BASILIXIMAB
     Indication: PRODUCT USED FOR UNKNOWN INDICATION
     Route: 065
  5. TACROLIMUS. [Suspect]
     Active Substance: TACROLIMUS
     Indication: PRODUCT USED FOR UNKNOWN INDICATION
     Route: 065

REACTIONS (17)
  - Candida infection [Unknown]
  - Respiratory tract infection [Unknown]
  - Pyrexia [Unknown]
  - Cytomegalovirus viraemia [Unknown]
  - Lymphoproliferative disorder [Unknown]
  - Kidney transplant rejection [Unknown]
  - Renal arteriosclerosis [Unknown]
  - Staphylococcal infection [Unknown]
  - Myocardial infarction [Unknown]
  - Epstein-Barr virus infection [Unknown]
  - Disseminated tuberculosis [Unknown]
  - Neutropenia [Unknown]
  - Ulcerative keratitis [Unknown]
  - Granuloma [Unknown]
  - Arthralgia [Unknown]
  - Oesophageal mass [Unknown]
  - Urinary tract infection [Unknown]
